FAERS Safety Report 6424481-7 (Version None)
Quarter: 2009Q4

REPORT INFORMATION
  Report Type: 
  Country: None (occurrence: None)
  Receive Date: 20091030
  Receipt Date: 20091014
  Transmission Date: 20100525
  Serious: Yes (Other)
  Sender: FDA-Public Use
  Company Number: AUR-APL-2009-00954

PATIENT
  Age: 44 Year
  Sex: Female

DRUGS (6)
  1. CITALOPRAM [Suspect]
     Indication: DEPRESSED MOOD
     Dates: end: 20080620
  2. CLOZARIL [Suspect]
     Indication: SCHIZOPHRENIA
     Dates: start: 19910925
  3. DIPROBASE [Suspect]
     Indication: SKIN IRRITATION
  4. INTERFERON ALFA [Concomitant]
  5. RIBAVIRIN [Concomitant]
  6. VENLAFAXINE [Concomitant]

REACTIONS (13)
  - COUGH [None]
  - DEPRESSED MOOD [None]
  - FATIGUE [None]
  - HAEMOGLOBIN DECREASED [None]
  - HEPATIC CIRRHOSIS [None]
  - HEPATIC STEATOSIS [None]
  - HEPATITIS C [None]
  - LETHARGY [None]
  - NEUTROPHIL COUNT DECREASED [None]
  - PLATELET COUNT DECREASED [None]
  - SKIN IRRITATION [None]
  - SPLENOMEGALY [None]
  - WHITE BLOOD CELL COUNT DECREASED [None]
